FAERS Safety Report 20984606 (Version 1)
Quarter: 2022Q2

REPORT INFORMATION
  Report Type: Spontaneous
  Country: US (occurrence: None)
  Receive Date: 20220621
  Receipt Date: 20220621
  Transmission Date: 20220720
  Serious: No
  Sender: FDA-Public Use
  Company Number: US-ROCHE-2827511

PATIENT
  Age: 42 Year
  Sex: Female
  Weight: 46.308 kg

DRUGS (4)
  1. XELODA [Suspect]
     Active Substance: CAPECITABINE
     Indication: Triple negative breast cancer
     Dosage: 3 PILLS TWICE A DAY
     Route: 048
     Dates: start: 20210412
  2. XELODA [Suspect]
     Active Substance: CAPECITABINE
     Dosage: TWO PILLS TWICE A DAY
     Route: 048
     Dates: end: 20210719
  3. PEPCID [Concomitant]
     Active Substance: FAMOTIDINE
  4. TUMS [Concomitant]
     Active Substance: CALCIUM CARBONATE

REACTIONS (7)
  - Nausea [Not Recovered/Not Resolved]
  - Diarrhoea [Recovered/Resolved]
  - Dyspepsia [Not Recovered/Not Resolved]
  - Palmar-plantar erythrodysaesthesia syndrome [Not Recovered/Not Resolved]
  - Stomatitis [Recovered/Resolved]
  - Cognitive disorder [Recovered/Resolved]
  - Off label use [Unknown]

NARRATIVE: CASE EVENT DATE: 20210412
